FAERS Safety Report 7101355-X (Version None)
Quarter: 2010Q4

REPORT INFORMATION
  Report Type: 
  Country: None (occurrence: None)
  Receive Date: 20101115
  Receipt Date: 20101101
  Transmission Date: 20110411
  Serious: Yes (Hospitalization, Other)
  Sender: FDA-Public Use
  Company Number: US-ELI_LILLY_AND_COMPANY-US201006002085

PATIENT
  Sex: Female

DRUGS (10)
  1. FORTEO [Suspect]
     Indication: OSTEOPOROSIS
     Dosage: 20 UG, DAILY (1/D)
     Dates: start: 20100501, end: 20100901
  2. AMLIPIN [Concomitant]
  3. SYNTHROID [Concomitant]
  4. ASPIRIN [Concomitant]
  5. CYCLOBENZAPRINE [Concomitant]
  6. LOSARTAN [Concomitant]
  7. MEGESTROL ACETATE [Concomitant]
  8. NAMENDA [Concomitant]
  9. AMITIZA [Concomitant]
  10. ARICEPT [Concomitant]

REACTIONS (6)
  - CONSTIPATION [None]
  - GENERAL PHYSICAL HEALTH DETERIORATION [None]
  - HEART RATE INCREASED [None]
  - HYPOTENSION [None]
  - RIB FRACTURE [None]
  - SPINAL COMPRESSION FRACTURE [None]
